FAERS Safety Report 7844838-7 (Version None)
Quarter: 2011Q4

REPORT INFORMATION
  Report Type: 
  Country: None (occurrence: None)
  Receive Date: 20111025
  Receipt Date: 20111014
  Transmission Date: 20120403
  Serious: Yes (Hospitalization)
  Sender: FDA-Public Use
  Company Number: US-GLAXOSMITHKLINE-B0712158A

PATIENT
  Sex: Female
  Weight: 88.2 kg

DRUGS (1)
  1. AVANDIA [Suspect]
     Indication: DIABETES MELLITUS
     Dosage: 8MG PER DAY
     Route: 048

REACTIONS (5)
  - PAIN [None]
  - OEDEMA [None]
  - HYPOGLYCAEMIA [None]
  - CATHETERISATION CARDIAC [None]
  - HYPERTENSION [None]
